FAERS Safety Report 11813202 (Version 8)
Quarter: 2016Q2

REPORT INFORMATION
  Report Type: Other
  Country: GB (occurrence: GB)
  Receive Date: 20151209
  Receipt Date: 20160610
  Transmission Date: 20160815
  Serious: Yes (Life-Threatening, Hospitalization, Other)
  Sender: FDA-Public Use
  Company Number: GB-CIPLA LTD.-2015GB09070

PATIENT

DRUGS (29)
  1. AMLODIPINE [Suspect]
     Active Substance: AMLODIPINE BESYLATE
     Dosage: UNK
     Route: 065
     Dates: start: 20101001
  2. RAMIPRIL. [Suspect]
     Active Substance: RAMIPRIL
     Dosage: 56 DF, SINGLE, FORM: UNKNOWN
     Route: 065
     Dates: start: 20141201, end: 20141201
  3. FLUOXETINE [Suspect]
     Active Substance: FLUOXETINE HYDROCHLORIDE
     Indication: DEPRESSION
     Dosage: 20 MG, UNK, FORM: UNKNOWN
     Route: 048
     Dates: start: 20120813
  4. AMLODIPINE [Suspect]
     Active Substance: AMLODIPINE BESYLATE
     Dosage: UNK
     Route: 065
     Dates: start: 20101001
  5. RAMIPRIL. [Suspect]
     Active Substance: RAMIPRIL
     Dosage: 56 DF, STRENGTH 2.5 MG, UNK
     Route: 065
     Dates: start: 20131010
  6. BISOPROLOL FUMARATE. [Suspect]
     Active Substance: BISOPROLOL FUMARATE
     Dosage: 16 DF, SINGLE
     Route: 065
     Dates: start: 20141201, end: 20141201
  7. ANADIN [Suspect]
     Active Substance: IBUPROFEN
     Dosage: UNK, DOSE IS 200MGX 16
     Route: 065
  8. AMLODIPINE [Suspect]
     Active Substance: AMLODIPINE BESYLATE
     Dosage: UNK
     Route: 065
  9. IBUPROFEN. [Suspect]
     Active Substance: IBUPROFEN
     Dosage: UNK
     Route: 065
     Dates: start: 20141119
  10. BISOPROLOL FUMARATE. [Suspect]
     Active Substance: BISOPROLOL FUMARATE
     Dosage: UNK
     Route: 065
     Dates: start: 20131008
  11. ATORVASTATIN [Concomitant]
     Active Substance: ATORVASTATIN
     Dosage: 20 MG, UNK
     Route: 065
     Dates: start: 20140110, end: 20140330
  12. FLUOXETINE [Suspect]
     Active Substance: FLUOXETINE HYDROCHLORIDE
     Dosage: 20 DF, STRENGTH 20 MG
     Route: 048
     Dates: start: 20141201, end: 20141217
  13. IBUPROFEN. [Suspect]
     Active Substance: IBUPROFEN
     Dosage: 16 DF, SINGLE, STRENGTH: 200 MG, FORM: UNKNOWN
     Route: 065
     Dates: start: 20141201
  14. ATORVASTATIN [Concomitant]
     Active Substance: ATORVASTATIN
     Dosage: 80 MG, UNK
     Route: 065
     Dates: start: 20131008, end: 20131219
  15. CLOPIDOGREL [Concomitant]
     Active Substance: CLOPIDOGREL BISULFATE
     Dosage: UNK
     Route: 065
     Dates: start: 20131008
  16. CO-AMOXICLAV [Concomitant]
     Active Substance: AMOXICILLIN\CLAVULANIC ACID
     Dosage: 1200 MG, TDS
     Route: 042
     Dates: start: 20140416, end: 20140418
  17. FLUOXETINE [Suspect]
     Active Substance: FLUOXETINE HYDROCHLORIDE
     Dosage: 20 DF, SINGLE, FORM: UNKNOWN
     Route: 048
     Dates: start: 20141201, end: 20141217
  18. IBUPROFEN. [Suspect]
     Active Substance: IBUPROFEN
     Dosage: UNK
     Route: 065
     Dates: start: 20141119
  19. CO-AMOXICLAV [Concomitant]
     Active Substance: AMOXICILLIN\CLAVULANIC ACID
     Dosage: 625 MG, TDS
     Route: 048
     Dates: start: 20140418, end: 20140423
  20. CODEINE PHOSPHATE [Concomitant]
     Active Substance: CODEINE PHOSPHATE
     Dosage: 30 MG, QDS PRN
     Route: 048
     Dates: start: 20140416
  21. AMLODIPINE [Suspect]
     Active Substance: AMLODIPINE BESYLATE
     Dosage: 20 DF, SINGLE
     Route: 065
     Dates: start: 20141201
  22. GLYCERYL TRINITRATE [Concomitant]
     Active Substance: NITROGLYCERIN
     Dosage: UNK
     Route: 065
     Dates: start: 20131008
  23. GLUCAGON. [Concomitant]
     Active Substance: GLUCAGON
     Dosage: UNK
     Route: 065
     Dates: start: 20141201, end: 20141201
  24. RAMIPRIL. [Suspect]
     Active Substance: RAMIPRIL
     Dosage: UNK, FORM: UNKNOWN
     Route: 065
     Dates: start: 20131010
  25. PARACETAMOL [Suspect]
     Active Substance: ACETAMINOPHEN
     Dosage: UNK
     Route: 065
     Dates: start: 20140510, end: 20140521
  26. ASPIRIN. [Suspect]
     Active Substance: ASPIRIN
     Dosage: 48 DF, SINGLE, FORM: UNKNOWN, STRENGTH 75 MG
     Route: 065
     Dates: start: 20131008, end: 20141201
  27. CLOPIDOGREL [Suspect]
     Active Substance: CLOPIDOGREL BISULFATE
     Dosage: UNK
     Route: 065
     Dates: start: 20131008
  28. ASPIRIN. [Suspect]
     Active Substance: ASPIRIN
     Dosage: 48 DF, SINGLE, STRENGTH : 75 MG
     Route: 065
     Dates: start: 20141201, end: 20141201
  29. TRAMADOL. [Concomitant]
     Active Substance: TRAMADOL
     Dosage: TRAMADOL 50-100MG ORAL Q4H PRN
     Route: 065
     Dates: start: 20140416

REACTIONS (7)
  - Bradycardia [Recovered/Resolved]
  - Suicide attempt [Recovered/Resolved]
  - Intentional overdose [Recovered/Resolved]
  - Vomiting [Recovered/Resolved]
  - Depressed mood [Not Recovered/Not Resolved]
  - Syncope [Recovered/Resolved]
  - Hypotension [Recovered/Resolved]

NARRATIVE: CASE EVENT DATE: 20141201
